FAERS Safety Report 7087111-X (Version None)
Quarter: 2010Q4

REPORT INFORMATION
  Report Type: 
  Country: None (occurrence: None)
  Receive Date: 20101106
  Receipt Date: 20101025
  Transmission Date: 20110411
  Serious: No
  Sender: FDA-Public Use
  Company Number: US-WYE-H18343510

PATIENT
  Sex: Female
  Weight: 64.01 kg

DRUGS (4)
  1. PRISTIQ [Suspect]
     Indication: DEPRESSION
     Route: 048
     Dates: start: 20080101
  2. BUTALBITAL [Concomitant]
  3. CARISOPRODOL [Concomitant]
  4. COUMADIN [Concomitant]

REACTIONS (2)
  - ABNORMAL FAECES [None]
  - DIARRHOEA [None]
